FAERS Safety Report 5717208-5 (Version None)
Quarter: 2008Q2

REPORT INFORMATION
  Report Type: 
  Country: None (occurrence: None)
  Receive Date: 20080424
  Receipt Date: 20080416
  Transmission Date: 20081010
  Serious: Yes (Other)
  Sender: FDA-Public Use
  Company Number: US-PFIZER INC-2008034208

PATIENT
  Sex: Male

DRUGS (4)
  1. CLEOCIN HCL CAPSULE [Suspect]
     Dates: start: 20080119, end: 20080301
  2. REGLAN [Concomitant]
     Indication: STOMACH DISCOMFORT
  3. RIFAXIMIN [Concomitant]
  4. MINOCYCLINE HCL [Concomitant]

REACTIONS (2)
  - DIARRHOEA [None]
  - WEIGHT DECREASED [None]
